FAERS Safety Report 23252872 (Version 1)
Quarter: 2023Q4

REPORT INFORMATION
  Report Type: Spontaneous
  Country: US (occurrence: US)
  Receive Date: 20231201
  Receipt Date: 20231201
  Transmission Date: 20240109
  Serious: No
  Sender: FDA-Public Use
  Company Number: US-ORG100016242-2023000126

PATIENT
  Age: 60 Year
  Sex: Female

DRUGS (2)
  1. ZILRETTA [Suspect]
     Active Substance: TRIAMCINOLONE ACETONIDE
     Indication: Osteoarthritis
     Dosage: 1 INJECTION IN BOTH KNEES
     Route: 014
     Dates: start: 20230324, end: 20230324
  2. BUPIVACAINE [Suspect]
     Active Substance: BUPIVACAINE
     Indication: Osteoarthritis
     Route: 014
     Dates: start: 20230324, end: 20230324

REACTIONS (3)
  - Drug ineffective [Recovered/Resolved]
  - Product use issue [Recovered/Resolved]
  - Product administration error [Recovered/Resolved]

NARRATIVE: CASE EVENT DATE: 20230324
